FAERS Safety Report 7040241-0 (Version None)
Quarter: 2010Q4

REPORT INFORMATION
  Report Type: 
  Country: None (occurrence: None)
  Receive Date: 20101012
  Receipt Date: 20101004
  Transmission Date: 20110411
  Serious: Yes (Hospitalization)
  Sender: FDA-Public Use
  Company Number: FR-ABBOTT-10P-056-0675881-00

PATIENT
  Age: 20 Year
  Sex: Male

DRUGS (3)
  1. HUMIRA [Suspect]
     Indication: CROHN'S DISEASE
     Route: 058
  2. HUMIRA [Suspect]
     Route: 058
  3. SOLUPRED [Concomitant]
     Indication: CROHN'S DISEASE

REACTIONS (5)
  - C-REACTIVE PROTEIN INCREASED [None]
  - CROHN'S DISEASE [None]
  - DIARRHOEA [None]
  - PYREXIA [None]
  - VOMITING [None]
